FAERS Safety Report 23598804 (Version 1)
Quarter: 2024Q1

REPORT INFORMATION
  Report Type: Spontaneous
  Country: GB (occurrence: GB)
  Receive Date: 20240306
  Receipt Date: 20240306
  Transmission Date: 20240410
  Serious: Yes (Hospitalization, Other)
  Sender: FDA-Public Use
  Company Number: None

PATIENT
  Age: 55 Year
  Sex: Female
  Weight: 88 kg

DRUGS (1)
  1. FENTANYL [Suspect]
     Active Substance: FENTANYL\FENTANYL CITRATE
     Indication: Lithotripsy
     Dosage: DURATION: 1 DAY
     Route: 065
     Dates: start: 20240212, end: 20240212

REACTIONS (14)
  - Dyspepsia [Not Recovered/Not Resolved]
  - Confusional state [Recovered/Resolved]
  - Nightmare [Recovering/Resolving]
  - Myalgia [Recovered/Resolved]
  - Fatigue [Recovering/Resolving]
  - Vomiting [Recovered/Resolved]
  - Influenza like illness [Recovering/Resolving]
  - Gastrooesophageal reflux disease [Recovering/Resolving]
  - Nausea [Recovered/Resolved]
  - Insomnia [Recovering/Resolving]
  - Urine output [Recovered/Resolved]
  - Dizziness [Recovered/Resolved]
  - Vision blurred [Recovered/Resolved]
  - Tremor [Recovered/Resolved]

NARRATIVE: CASE EVENT DATE: 20240212
